FAERS Safety Report 9797779 (Version 1)
Quarter: 2014Q1

REPORT INFORMATION
  Report Type: Spontaneous
  Country: US (occurrence: US)
  Receive Date: 20140106
  Receipt Date: 20140106
  Transmission Date: 20141002
  Serious: No
  Sender: FDA-Public Use
  Company Number: US-PFIZER INC-2014002494

PATIENT
  Sex: Female

DRUGS (2)
  1. SOLU-MEDROL [Suspect]
     Indication: PROCEDURAL PAIN
     Dosage: UNK, 1X/DAY
     Route: 048
     Dates: start: 201310, end: 2013
  2. SOLU-MEDROL [Suspect]
     Indication: INFLAMMATION

REACTIONS (4)
  - Off label use [Unknown]
  - Drug administration error [Unknown]
  - Alopecia [Unknown]
  - Dizziness [Unknown]
